FAERS Safety Report 4713888-1 (Version None)
Quarter: 2005Q3

REPORT INFORMATION
  Report Type: 
  Country: None (occurrence: None)
  Receive Date: 20050713
  Receipt Date: 20050628
  Transmission Date: 20060218
  Serious: Yes (Hospitalization)
  Sender: FDA-Public Use
  Company Number: 215743

PATIENT
  Age: 77 Year
  Sex: Female

DRUGS (6)
  1. AVASTIN [Suspect]
     Indication: COLON CANCER
     Dosage: 5 MG/KG, Q2W, INT CORP CAVER
     Dates: start: 20041101, end: 20041215
  2. OXALIPLATIN (OXALIPLATIN) [Concomitant]
  3. LEUCOVORIN CALCIUM [Concomitant]
     Indication: COLON CANCER
     Dates: start: 20041101, end: 20041215
  4. OXALIPLATIN (OXALIPLATIN) [Concomitant]
  5. LEUCOVORIN CALCIUM [Concomitant]
  6. 5-FU (FLUOROURACIL) [Concomitant]

REACTIONS (8)
  - CHEST PAIN [None]
  - DRUG TOXICITY [None]
  - HYPERTENSION [None]
  - INFLAMMATION [None]
  - INTERSTITIAL LUNG DISEASE [None]
  - LUNG INFILTRATION [None]
  - PNEUMONIA PRIMARY ATYPICAL [None]
  - PULMONARY FIBROSIS [None]
